FAERS Safety Report 24764784 (Version 2)
Quarter: 2025Q1

REPORT INFORMATION
  Report Type: Spontaneous
  Country: JP (occurrence: JP)
  Receive Date: 20241223
  Receipt Date: 20250106
  Transmission Date: 20250408
  Serious: Yes (Hospitalization)
  Sender: CSL BEHRING
  Company Number: JP-BEH-2024185763

PATIENT
  Age: 25 Year
  Sex: Male

DRUGS (13)
  1. PRIVIGEN [Suspect]
     Active Substance: HUMAN IMMUNOGLOBULIN G
     Indication: Product used for unknown indication
     Route: 042
  2. MENATETRENONE [Concomitant]
     Active Substance: MENATETRENONE
  3. CLOFAZIMINE [Concomitant]
     Active Substance: CLOFAZIMINE
  4. SITAFLOXACIN [Concomitant]
     Active Substance: SITAFLOXACIN
  5. VONOPRAZAN FUMARATE [Concomitant]
     Active Substance: VONOPRAZAN FUMARATE
  6. DAYVIGO [Concomitant]
     Active Substance: LEMBOREXANT
  7. URSO [Concomitant]
     Active Substance: URSODIOL
  8. AMBROXOL HYDROCHLORIDE [Concomitant]
     Active Substance: AMBROXOL HYDROCHLORIDE
  9. CARBOCYSTEINE [Concomitant]
     Active Substance: CARBOCYSTEINE
  10. SULFAMETHOXAZOLE\TRIMETHOPRIM [Concomitant]
     Active Substance: SULFAMETHOXAZOLE\TRIMETHOPRIM
  11. FLUCONAZOLE [Concomitant]
     Active Substance: FLUCONAZOLE
  12. MIYA-BM [Concomitant]
     Active Substance: CLOSTRIDIUM BUTYRICUM SPORES STRAIN M-55
  13. LEVOTHYROXINE [Concomitant]
     Active Substance: LEVOTHYROXINE

REACTIONS (4)
  - Hospitalisation [Unknown]
  - Hepatitis B surface antibody positive [Unknown]
  - Hepatitis B core antibody positive [Recovered/Resolved]
  - Misleading laboratory test result [Unknown]

NARRATIVE: CASE EVENT DATE: 20241108
